FAERS Safety Report 16934972 (Version 3)
Quarter: 2020Q2

REPORT INFORMATION
  Report Type: Spontaneous
  Country: FR (occurrence: FR)
  Receive Date: 20191018
  Receipt Date: 20200602
  Transmission Date: 20200713
  Serious: Yes (Hospitalization, Other)
  Sender: FDA-Public Use
  Company Number: FR-BAYER-2019-105045

PATIENT
  Age: 30 Year
  Sex: Female

DRUGS (5)
  1. PROVAMES [Suspect]
     Active Substance: ESTRADIOL
     Indication: CONTRACEPTION
  2. METHYLDOPA. [Concomitant]
     Active Substance: METHYLDOPA
     Indication: HYPERTENSION
  3. ANDROCUR [Suspect]
     Active Substance: CYPROTERONE ACETATE
     Indication: CONTRACEPTION
     Dosage: UNK
     Route: 048
     Dates: start: 20101029, end: 201503
  4. ANDROCUR [Suspect]
     Active Substance: CYPROTERONE ACETATE
     Indication: HIRSUTISM
  5. MIRENA [Suspect]
     Active Substance: LEVONORGESTREL
     Dosage: 20 ?G PER DAY, CONTINUOUSLY
     Dates: start: 20051229, end: 20101029

REACTIONS (22)
  - Irritability [Not Recovered/Not Resolved]
  - Depression [Not Recovered/Not Resolved]
  - Back pain [None]
  - Pain in extremity [None]
  - Fatigue [Not Recovered/Not Resolved]
  - Asthenia [None]
  - Photophobia [Not Recovered/Not Resolved]
  - Fungal infection [None]
  - Internal fixation of fracture [None]
  - Eye pain [None]
  - Lumbar spinal stenosis [None]
  - Hair growth abnormal [None]
  - Neck injury [None]
  - Hyperacusis [Not Recovered/Not Resolved]
  - Meningioma [None]
  - Paraesthesia [None]
  - Road traffic accident [None]
  - Suicide threat [None]
  - Headache [Not Recovered/Not Resolved]
  - Anxiety [None]
  - Dysarthria [None]
  - Tremor [None]

NARRATIVE: CASE EVENT DATE: 20070802
